FAERS Safety Report 9281007 (Version 21)
Quarter: 2016Q4

REPORT INFORMATION
  Report Type: Spontaneous
  Country: US (occurrence: US)
  Receive Date: 20130509
  Receipt Date: 20161010
  Transmission Date: 20170207
  Serious: Yes (Hospitalization, Other)
  Sender: FDA-Public Use
  Company Number: US-GLAXOSMITHKLINE-A1014224A

PATIENT
  Age: 67 Year
  Sex: Female

DRUGS (22)
  1. FLOLAN [Suspect]
     Active Substance: EPOPROSTENOL SODIUM
     Indication: PULMONARY ARTERIAL HYPERTENSION
     Dosage: 55 NG/KG/MIN CONTINUOUS CONCENTRATION: 75,000 NG/ML VIAL STRENGTH: 1.5 MG58 NG/KG/MIN CONTINUOU[...]
     Route: 042
     Dates: start: 20110209
  2. FLOLAN [Suspect]
     Active Substance: EPOPROSTENOL SODIUM
     Dosage: 71 NG/KG/MIN, CO
     Route: 042
  3. FLOLAN [Suspect]
     Active Substance: EPOPROSTENOL SODIUM
     Dosage: 71 NG/KG/MIN, CO
     Route: 042
     Dates: start: 20110219
  4. COUMADIN [Concomitant]
     Active Substance: WARFARIN SODIUM
  5. FLOLAN [Suspect]
     Active Substance: EPOPROSTENOL SODIUM
     Dosage: UNK
     Dates: start: 20110209
  6. LETAIRIS [Suspect]
     Active Substance: AMBRISENTAN
     Indication: PRODUCT USED FOR UNKNOWN INDICATION
  7. FLOLAN [Suspect]
     Active Substance: EPOPROSTENOL SODIUM
     Dosage: UNK
     Dates: start: 20110209
  8. FLOLAN [Suspect]
     Active Substance: EPOPROSTENOL SODIUM
     Dosage: UNK
  9. FLOLAN [Suspect]
     Active Substance: EPOPROSTENOL SODIUM
     Indication: PULMONARY ARTERIAL HYPERTENSION
     Dosage: UNK
  10. FLOLAN [Suspect]
     Active Substance: EPOPROSTENOL SODIUM
     Dosage: UNK
     Dates: start: 20110209
  11. FLOLAN [Suspect]
     Active Substance: EPOPROSTENOL SODIUM
     Dosage: UNK
     Dates: start: 20110209
  12. FLOLAN [Suspect]
     Active Substance: EPOPROSTENOL SODIUM
     Dosage: UNK
     Dates: start: 20110209
  13. ADCIRCA [Concomitant]
     Active Substance: TADALAFIL
  14. FLOLAN [Suspect]
     Active Substance: EPOPROSTENOL SODIUM
     Dosage: 60.5 DF, CO
     Route: 042
     Dates: start: 20110219
  15. FLOLAN [Suspect]
     Active Substance: EPOPROSTENOL SODIUM
     Dosage: UNK
     Dates: start: 20110209
  16. FLOLAN [Suspect]
     Active Substance: EPOPROSTENOL SODIUM
     Dosage: 58 NG/KG/MIN (CONCENTRATION 75,000 NG/ML, PUMP RATE 89 ML/DAY, VIAL STRENGTH 1.5 MG), CO
     Route: 042
  17. FLOLAN [Suspect]
     Active Substance: EPOPROSTENOL SODIUM
     Dosage: UNK
  18. FLOLAN [Suspect]
     Active Substance: EPOPROSTENOL SODIUM
     Dosage: UNK
     Dates: start: 20110209
  19. FLOLAN [Suspect]
     Active Substance: EPOPROSTENOL SODIUM
     Dosage: UNK
  20. FLOLAN [Suspect]
     Active Substance: EPOPROSTENOL SODIUM
     Dosage: UNK
     Dates: start: 20110209
  21. FLOLAN [Suspect]
     Active Substance: EPOPROSTENOL SODIUM
     Dosage: UNK
     Dates: start: 20110209
  22. TRACLEER [Concomitant]
     Active Substance: BOSENTAN

REACTIONS (21)
  - Weight decreased [Unknown]
  - Arthralgia [Not Recovered/Not Resolved]
  - Dermatitis contact [Unknown]
  - Oxygen saturation decreased [Unknown]
  - Oxygen supplementation [Unknown]
  - Diarrhoea [Unknown]
  - Nasal congestion [Unknown]
  - Adrenal insufficiency [Unknown]
  - Pain [Not Recovered/Not Resolved]
  - Haemorrhage [Unknown]
  - Nephrolithiasis [Unknown]
  - Fluid overload [Unknown]
  - Device infusion issue [Unknown]
  - Respiratory failure [Not Recovered/Not Resolved]
  - Hospitalisation [Unknown]
  - Pain in extremity [Not Recovered/Not Resolved]
  - Dyspnoea at rest [Unknown]
  - Infusion site infection [Unknown]
  - Decreased appetite [Unknown]
  - Fatigue [Unknown]
  - Chronic disease [Unknown]

NARRATIVE: CASE EVENT DATE: 2012
